FAERS Safety Report 19634485 (Version 2)
Quarter: 2022Q4

REPORT INFORMATION
  Report Type: Spontaneous
  Country: US (occurrence: US)
  Receive Date: 20210729
  Receipt Date: 20221101
  Transmission Date: 20230113
  Serious: No
  Sender: FDA-Public Use
  Company Number: US-PARATEK PHARMACEUTICALS, INC.-2021PTK00056

PATIENT
  Sex: Male
  Weight: 68.027 kg

DRUGS (21)
  1. NUZYRA [Suspect]
     Active Substance: OMADACYCLINE
     Indication: Atypical pneumonia
     Dosage: 450 MG, 1X/DAY
     Route: 048
     Dates: start: 20210425, end: 20210426
  2. NUZYRA [Suspect]
     Active Substance: OMADACYCLINE
     Indication: Mycobacterial infection
     Dosage: 300 MG, 1X/DAY
     Route: 048
     Dates: start: 20210427, end: 20210510
  3. NUZYRA [Suspect]
     Active Substance: OMADACYCLINE
     Indication: Bacterial sepsis
     Dosage: 300 MG, 1X/DAY
     Route: 048
     Dates: start: 2021
  4. NUZYRA [Suspect]
     Active Substance: OMADACYCLINE
     Indication: Pneumonia bacterial
     Dosage: 150 MG, 2X/DAY (1 TABLET AT MIDNIGHT, 1 TABLET AT 2:30 AM)
     Route: 048
     Dates: end: 202204
  5. TYGACIL [Suspect]
     Active Substance: TIGECYCLINE
     Indication: Atypical pneumonia
     Dosage: 50 MG, 2X/DAY
     Dates: end: 202104
  6. TYGACIL [Suspect]
     Active Substance: TIGECYCLINE
     Indication: Product used for unknown indication
     Dosage: 25 MG, 2X/DAY
     Dates: start: 202104
  7. BACTRIM [Suspect]
     Active Substance: SULFAMETHOXAZOLE\TRIMETHOPRIM
     Indication: Atypical pneumonia
     Dosage: UNK
     Dates: start: 2021, end: 20210509
  8. BACTRIM [Suspect]
     Active Substance: SULFAMETHOXAZOLE\TRIMETHOPRIM
     Indication: Product used for unknown indication
  9. ZOFRAN [Concomitant]
     Active Substance: ONDANSETRON HYDROCHLORIDE
     Dosage: UNK
  10. CLARITIN [Concomitant]
     Active Substance: LORATADINE
     Dosage: 10 MG, 1X/DAY
  11. ALBUTEROL RESCUE INHALER [Concomitant]
     Dosage: UNK, AS NEEDED
  12. ALBUTEROL AEROSOL TREATMENT [Concomitant]
     Dosage: UNK, 2X/DAY
  13. ADVAIR HFA [Concomitant]
     Active Substance: FLUTICASONE PROPIONATE\SALMETEROL XINAFOATE
     Dosage: 2 DOSAGE UNITS, 2X/DAY
  14. PROSCAR [Concomitant]
     Active Substance: FINASTERIDE
  15. FLONASE [Concomitant]
     Active Substance: FLUTICASONE PROPIONATE
     Dosage: UNK, 1X/DAY
  16. LIPITOR [Concomitant]
     Active Substance: ATORVASTATIN CALCIUM
  17. NORVASC [Concomitant]
     Active Substance: AMLODIPINE BESYLATE
  18. KENALOG [Concomitant]
     Active Substance: TRIAMCINOLONE ACETONIDE
     Dosage: UNK, 1X/YEAR IN THE SPRING
  19. AMIKACIN [Concomitant]
     Active Substance: AMIKACIN
     Dosage: 1500 MG, 3X/WEEK
  20. CLOFAZIMINE [Concomitant]
     Active Substance: CLOFAZIMINE
  21. UNSPECIFIED INGREDIENT [Concomitant]
     Active Substance: UNSPECIFIED INGREDIENT

REACTIONS (5)
  - Decreased appetite [Not Recovered/Not Resolved]
  - Condition aggravated [Unknown]
  - Nausea [Recovered/Resolved]
  - Vomiting [Recovered/Resolved]
  - Off label use [Recovered/Resolved]

NARRATIVE: CASE EVENT DATE: 20210101
